FAERS Safety Report 23958418 (Version 1)
Quarter: 2024Q2

REPORT INFORMATION
  Report Type: Spontaneous
  Country: US (occurrence: US)
  Receive Date: 20240610
  Receipt Date: 20240610
  Transmission Date: 20240715
  Serious: No
  Sender: FDA-Public Use
  Company Number: US-MYLANLABS-2024M1051544

PATIENT
  Sex: Female
  Weight: 65.77 kg

DRUGS (1)
  1. XULANE [Suspect]
     Active Substance: ETHINYL ESTRADIOL\NORELGESTROMIN
     Indication: Contraception
     Dosage: UNK, QW(ONCE A WEEK )
     Route: 062

REACTIONS (3)
  - Vaginal haemorrhage [Not Recovered/Not Resolved]
  - Tremor [Unknown]
  - Muscle spasms [Recovered/Resolved]
